FAERS Safety Report 5601265-0 (Version None)
Quarter: 2008Q1

REPORT INFORMATION
  Report Type: 
  Country: None (occurrence: None)
  Receive Date: 20080124
  Receipt Date: 20080115
  Transmission Date: 20080703
  Serious: Yes (Death, Life-Threatening)
  Sender: FDA-Public Use
  Company Number: A0695480B

PATIENT
  Age: 43 Year
  Sex: Female
  Weight: 49 kg

DRUGS (2)
  1. PAZOPANIB [Suspect]
     Indication: CERVIX CARCINOMA
     Dosage: 800MG PER DAY
     Route: 048
     Dates: start: 20070917
  2. LAPATINIB [Suspect]
     Indication: CERVIX CARCINOMA
     Dosage: 1500MG PER DAY
     Route: 048
     Dates: start: 20070917

REACTIONS (3)
  - HAEMOPTYSIS [None]
  - PULMONARY HAEMORRHAGE [None]
  - TUMOUR NECROSIS [None]
